FAERS Safety Report 14095673 (Version 4)
Quarter: 2018Q1

REPORT INFORMATION
  Report Type: Spontaneous
  Country: US (occurrence: US)
  Receive Date: 20171016
  Receipt Date: 20180202
  Transmission Date: 20180508
  Serious: No
  Sender: FDA-Public Use
  Company Number: US-ACTELION-A-US2017-159614

PATIENT
  Age: 60 Year
  Sex: Female
  Weight: 122.45 kg

DRUGS (8)
  1. UPTRAVI [Suspect]
     Active Substance: SELEXIPAG
     Dosage: 800 MCG, BID
     Route: 048
  2. LETAIRIS [Suspect]
     Active Substance: AMBRISENTAN
     Indication: PRODUCT USED FOR UNKNOWN INDICATION
     Route: 065
  3. UPTRAVI [Suspect]
     Active Substance: SELEXIPAG
     Dosage: 200 MCG, BID
     Route: 048
  4. UPTRAVI [Suspect]
     Active Substance: SELEXIPAG
     Indication: PULMONARY ARTERIAL HYPERTENSION
     Dosage: 400MCG IN AM AND 600MCG IN PM
     Route: 048
  5. UPTRAVI [Suspect]
     Active Substance: SELEXIPAG
     Dosage: UNK
     Route: 048
     Dates: end: 20171011
  6. ADEMPAS [Concomitant]
     Active Substance: RIOCIGUAT
  7. ADCIRCA [Concomitant]
     Active Substance: TADALAFIL
  8. UPTRAVI [Suspect]
     Active Substance: SELEXIPAG
     Dosage: 400 MCG, BID
     Route: 048

REACTIONS (8)
  - Peripheral swelling [Unknown]
  - Fluid retention [Unknown]
  - Vomiting [Unknown]
  - Blood creatinine increased [Unknown]
  - Headache [Unknown]
  - Nausea [Unknown]
  - Renal disorder [Unknown]
  - Diarrhoea [Unknown]
